FAERS Safety Report 14935241 (Version 2)
Quarter: 2020Q1

REPORT INFORMATION
  Report Type: Spontaneous
  Country: DE (occurrence: DE)
  Receive Date: 20180524
  Receipt Date: 20200108
  Transmission Date: 20200409
  Serious: Yes (Hospitalization, Other)
  Sender: FDA-Public Use
  Company Number: PHHY2018DE006883

PATIENT
  Sex: Male

DRUGS (2)
  1. TRIAMHEXAL [Suspect]
     Active Substance: TRIAMCINOLONE
     Indication: WRIST SURGERY
     Dosage: 40 MG, UNK
     Route: 065
  2. CARBOSTESIN [Concomitant]
     Active Substance: BUPIVACAINE HYDROCHLORIDE
     Indication: PRODUCT USED FOR UNKNOWN INDICATION
     Dosage: UNK
     Route: 065

REACTIONS (7)
  - Joint destruction [Unknown]
  - Sepsis [Unknown]
  - Empyema [Unknown]
  - Joint stiffness [Unknown]
  - Intentional product misuse [Unknown]
  - Joint injury [Unknown]
  - Staphylococcal infection [Unknown]
